FAERS Safety Report 4342007-9 (Version None)
Quarter: 2004Q1

REPORT INFORMATION
  Report Type: 
  Country: None (occurrence: None)
  Receive Date: 20040329
  Receipt Date: 20031208
  Transmission Date: 20041129
  Serious: No
  Sender: FDA-Public Use
  Company Number: 03P-163-0244295-00

PATIENT
  Age: 47 Year
  Sex: Male
  Weight: 70.3075 kg

DRUGS (8)
  1. HUMIRA [Suspect]
     Indication: RHEUMATOID ARTHRITIS
     Dosage: 40 MG, 1 IN 2 WK, SUBCUTANEOUS
     Route: 001
     Dates: start: 20030701
  2. VERAPAMIL [Concomitant]
  3. DIRUETIC [Concomitant]
  4. PREDNISONE [Concomitant]
  5. ATORVASTATIN [Concomitant]
  6. METHOTREXATE [Concomitant]
  7. ALENDRONATE SODIUM [Concomitant]
  8. CALCIUM [Concomitant]

REACTIONS (1)
  - INJECTION SITE HAEMORRHAGE [None]
